FAERS Safety Report 10223732 (Version 1)
Quarter: 2014Q2

REPORT INFORMATION
  Report Type: Spontaneous
  Country: US (occurrence: US)
  Receive Date: 20140609
  Receipt Date: 20140609
  Transmission Date: 20141212
  Serious: Yes (Hospitalization, Other)
  Sender: FDA-Public Use
  Company Number: US-JNJFOC-20140516863

PATIENT
  Age: 61 Year
  Sex: Female

DRUGS (1)
  1. DIPHENHYDRAMINE [Suspect]
     Indication: SLEEP DISORDER THERAPY
     Dosage: UP TO 60 TABLETS DAILY FOR AT LEAST 6 MONTHS AND POSSIBLY A COUPLE OF YEARS
     Route: 048

REACTIONS (6)
  - Drug abuse [Unknown]
  - Withdrawal syndrome [Unknown]
  - Overdose [Unknown]
  - Hyperhidrosis [Unknown]
  - Delirium [Unknown]
  - Agitation [Unknown]
